FAERS Safety Report 10208426 (Version 1)
Quarter: 2014Q2

REPORT INFORMATION
  Report Type: Spontaneous
  Country: US (occurrence: US)
  Receive Date: 20140530
  Receipt Date: 20140530
  Transmission Date: 20141212
  Serious: Yes (Other)
  Sender: FDA-Public Use
  Company Number: US-GLAXOSMITHKLINE-A1072541A

PATIENT
  Age: 30 Year
  Sex: Male

DRUGS (4)
  1. LAMICTAL [Suspect]
     Indication: EPILEPSY
     Dosage: 300MG TWICE PER DAY
     Route: 048
     Dates: start: 20110511, end: 20140511
  2. LAMOTRIGINE [Suspect]
     Indication: EPILEPSY
     Dosage: 300MG TWICE PER DAY
     Route: 048
     Dates: start: 20140511
  3. LAMICTAL XR [Suspect]
     Indication: PRODUCT USED FOR UNKNOWN INDICATION
     Dosage: 50MG UNKNOWN
     Dates: start: 20110427
  4. NO CONCURRENT MEDICATION [Concomitant]

REACTIONS (5)
  - Convulsion [Unknown]
  - Condition aggravated [Unknown]
  - Somnolence [Unknown]
  - Vomiting [Unknown]
  - Memory impairment [Not Recovered/Not Resolved]
